FAERS Safety Report 9461215 (Version 1)
Quarter: 2013Q3

REPORT INFORMATION
  Report Type: Spontaneous
  Country: US (occurrence: US)
  Receive Date: 20130816
  Receipt Date: 20130816
  Transmission Date: 20140515
  Serious: Yes (Hospitalization)
  Sender: FDA-Public Use
  Company Number: US-ASTRAZENECA-2013SE62585

PATIENT
  Age: 44 Year
  Sex: Male

DRUGS (5)
  1. BRILINTA [Suspect]
     Indication: STENT PLACEMENT
     Route: 048
     Dates: start: 201307, end: 201307
  2. BRILINTA [Suspect]
     Indication: STENT PLACEMENT
     Route: 048
     Dates: start: 201307, end: 201307
  3. BRILINTA [Suspect]
     Indication: STENT PLACEMENT
     Route: 048
     Dates: start: 201307
  4. REOPRO [Suspect]
     Route: 065
  5. ASPIRIN [Concomitant]

REACTIONS (4)
  - Pneumonia aspiration [Recovering/Resolving]
  - Vomiting [Unknown]
  - Pulmonary haemorrhage [Recovering/Resolving]
  - Off label use [Recovered/Resolved]
